FAERS Safety Report 21964590 (Version 2)
Quarter: 2023Q1

REPORT INFORMATION
  Report Type: Spontaneous
  Country: US (occurrence: US)
  Receive Date: 20230207
  Receipt Date: 20230316
  Transmission Date: 20230417
  Serious: No
  Sender: FDA-Public Use
  Company Number: US-Merz Pharmaceuticals GmbH-23-00116

PATIENT
  Age: 27 Year
  Sex: Female
  Weight: 58.9 kg

DRUGS (3)
  1. XEOMIN [Suspect]
     Active Substance: INCOBOTULINUMTOXINA
     Indication: Skin cosmetic procedure
     Route: 030
     Dates: start: 20230111, end: 20230111
  2. BOTOX [Concomitant]
     Active Substance: ONABOTULINUMTOXINA
  3. DYSPORT [BOTULINUM TOXIN TYPE A] [Concomitant]

REACTIONS (6)
  - Injection site discomfort [Recovered/Resolved]
  - Urticaria [Recovered/Resolved]
  - Injection site erythema [Recovered/Resolved]
  - Injection site pain [Recovered/Resolved]
  - Product preparation issue [Unknown]
  - Off label use [Unknown]

NARRATIVE: CASE EVENT DATE: 20230111
